FAERS Safety Report 7329475-5 (Version None)
Quarter: 2011Q1

REPORT INFORMATION
  Report Type: 
  Country: None (occurrence: None)
  Receive Date: 20110225
  Receipt Date: 20110225
  Transmission Date: 20110831
  Serious: Yes (Other)
  Sender: FDA-Public Use
  Company Number: None

PATIENT
  Age: 53 Year
  Sex: Female
  Weight: 58.9676 kg

DRUGS (1)
  1. LISINOPRIL [Suspect]
     Indication: BLOOD PRESSURE INCREASED
     Dosage: 2.5 MG 1/DDAY
     Dates: start: 20070710, end: 20101222

REACTIONS (6)
  - THYROID NEOPLASM [None]
  - COUGH [None]
  - CRYING [None]
  - PRODUCT QUALITY ISSUE [None]
  - SLEEP DISORDER [None]
  - FATIGUE [None]
